FAERS Safety Report 6444101-5 (Version None)
Quarter: 2009Q4

REPORT INFORMATION
  Report Type: 
  Country: None (occurrence: None)
  Receive Date: 20091118
  Receipt Date: 20091105
  Transmission Date: 20100525
  Serious: Yes (Other)
  Sender: FDA-Public Use
  Company Number: DE-RANBAXY-2009RR-29110

PATIENT
  Age: 48 Year
  Sex: Male

DRUGS (2)
  1. AMOXICILLIN [Suspect]
     Indication: PERIODONTAL DISEASE
     Dosage: 1500 MG, QD
     Route: 048
  2. METRONIDAZOLE [Suspect]
     Indication: PERIODONTAL DISEASE
     Dosage: 1200 MG, QD
     Route: 048

REACTIONS (6)
  - BLOOD PRESSURE INCREASED [None]
  - DIARRHOEA [None]
  - DIZZINESS [None]
  - PAIN [None]
  - PALPITATIONS [None]
  - PULSE PRESSURE INCREASED [None]
